FAERS Safety Report 9805738 (Version 3)
Quarter: 2014Q1

REPORT INFORMATION
  Report Type: Spontaneous
  Country: US (occurrence: US)
  Receive Date: 20140109
  Receipt Date: 20140203
  Transmission Date: 20141002
  Serious: Yes (Other)
  Sender: FDA-Public Use
  Company Number: US-SA-2014SA002464

PATIENT
  Age: 76 Year
  Sex: Female
  Weight: 70.3 kg

DRUGS (9)
  1. MULTAQ [Suspect]
     Indication: ATRIAL FIBRILLATION
     Route: 048
     Dates: start: 2012, end: 2012
  2. MULTAQ [Suspect]
     Indication: ATRIAL FIBRILLATION
     Route: 048
     Dates: start: 2012, end: 2013
  3. METOPROLOL [Concomitant]
     Indication: ATRIAL FIBRILLATION
  4. METOPROLOL [Concomitant]
     Indication: HYPERTENSION
  5. ASPIRIN [Concomitant]
     Indication: CARDIAC DISORDER
  6. MULTIVITAMINS [Concomitant]
  7. TYLENOL [Concomitant]
  8. SIMVASTATIN [Concomitant]
  9. POTASSIUM CHLORIDE [Concomitant]

REACTIONS (6)
  - Drug hypersensitivity [Unknown]
  - Abdominal pain upper [Unknown]
  - Bladder pain [Unknown]
  - Malaise [Unknown]
  - Atrial fibrillation [Not Recovered/Not Resolved]
  - Decreased appetite [Recovered/Resolved]
